FAERS Safety Report 7820034-4 (Version None)
Quarter: 2011Q4

REPORT INFORMATION
  Report Type: 
  Country: None (occurrence: None)
  Receive Date: 20111013
  Receipt Date: 20111006
  Transmission Date: 20120403
  Serious: Yes (Life-Threatening, Other)
  Sender: FDA-Public Use
  Company Number: GER/UKI/11/0021454

PATIENT
  Age: 25 Year
  Sex: Female

DRUGS (5)
  1. LEVOFLOXACIN [Suspect]
     Indication: CELLULITIS
     Dosage: 500 MG, 2 IN 1 D, ORAL
     Route: 048
     Dates: start: 20110919, end: 20110922
  2. PREDNISOLONE [Concomitant]
  3. FLECAINIDE ACETATE [Concomitant]
  4. MONTELUKAST SODIUM [Concomitant]
  5. VERAPAMIL [Concomitant]

REACTIONS (1)
  - GASTRITIS EROSIVE [None]
